FAERS Safety Report 10368585 (Version 1)
Quarter: 2014Q3

REPORT INFORMATION
  Report Type: Spontaneous
  Country: GB (occurrence: GB)
  Receive Date: 20140807
  Receipt Date: 20140807
  Transmission Date: 20150326
  Serious: Yes (Other)
  Sender: FDA-Public Use
  Company Number: GB-GLAXOSMITHKLINE-B1019554A

PATIENT
  Age: 56 Year
  Sex: Female

DRUGS (4)
  1. DEPAKOTE [Suspect]
     Active Substance: DIVALPROEX SODIUM
     Dosage: 1000MG PER DAY
  2. PROCYCLIDINE [Suspect]
     Active Substance: PROCYCLIDINE
     Dosage: 10MG PER DAY
     Dates: start: 20140604
  3. DEPIXOL [Concomitant]
     Active Substance: FLUPENTIXOL DECANOATE
  4. LITHIUM CARBONATE. [Suspect]
     Active Substance: LITHIUM CARBONATE

REACTIONS (1)
  - Alopecia [Not Recovered/Not Resolved]
